FAERS Safety Report 22381183 (Version 1)
Quarter: 2023Q2

REPORT INFORMATION
  Report Type: Other
  Country: CN (occurrence: None)
  Receive Date: 20230530
  Receipt Date: 20230530
  Transmission Date: 20230722
  Serious: Yes (Other)
  Sender: FDA-Public Use
  Company Number: CN-ROCHE-3357039

PATIENT

DRUGS (3)
  1. RITUXIMAB [Suspect]
     Active Substance: RITUXIMAB
     Indication: Systemic lupus erythematosus
     Dosage: TWO DOSES OF 375 MG/M2 INFUSED AT 2-WEEK INTERVALS, ONE SINGLE DOSE OF 375 MG/M2, TWO DOSES OF 200MG
     Route: 042
  2. DEXAMETHASONE [Concomitant]
     Active Substance: DEXAMETHASONE
     Route: 042
  3. PROMETHAZINE [Concomitant]
     Active Substance: PROMETHAZINE HYDROCHLORIDE
     Route: 030

REACTIONS (11)
  - Acute kidney injury [Unknown]
  - Treatment failure [Unknown]
  - Respiratory tract infection [Unknown]
  - Urinary tract infection [Unknown]
  - Gastroenteritis [Unknown]
  - Central nervous system infection [Unknown]
  - Biliary tract infection [Unknown]
  - Herpes zoster [Unknown]
  - Infusion related reaction [Unknown]
  - Pyrexia [Unknown]
  - Deep vein thrombosis [Unknown]
